FAERS Safety Report 5353660-5 (Version None)
Quarter: 2007Q2

REPORT INFORMATION
  Report Type: 
  Country: None (occurrence: None)
  Receive Date: 20070612
  Receipt Date: 20070605
  Transmission Date: 20071010
  Serious: Yes (Other)
  Sender: FDA-Public Use
  Company Number: JP-AVENTIS-200711456JP

PATIENT
  Age: 13 Year
  Sex: Female

DRUGS (3)
  1. ALLEGRA [Suspect]
     Indication: DERMATITIS ATOPIC
     Route: 048
     Dates: start: 20070419, end: 20070510
  2. AZEPTIN                            /00884001/ [Concomitant]
     Indication: DERMATITIS ATOPIC
     Dates: end: 20070418
  3. AZEPTIN                            /00884001/ [Concomitant]

REACTIONS (2)
  - CONJUNCTIVITIS [None]
  - ERYTHEMA MULTIFORME [None]
